FAERS Safety Report 5256171-0 (Version None)
Quarter: 2007Q1

REPORT INFORMATION
  Report Type: 
  Country: None (occurrence: None)
  Receive Date: 20061204
  Receipt Date: 20060807
  Transmission Date: 20070707
  Serious: No
  Sender: FDA-Public Use
  Company Number: 2006-BP-09121BP

PATIENT
  Sex: Male

DRUGS (3)
  1. SPIRIVA [Suspect]
     Indication: CHRONIC OBSTRUCTIVE PULMONARY DISEASE
     Dosage: 36 MCG (18 MCG, 4 DOSES), IH
     Route: 055
     Dates: start: 20060805, end: 20060806
  2. TEGRETOL [Concomitant]
  3. LAMICTAL [Concomitant]

REACTIONS (3)
  - APTYALISM [None]
  - DRY MOUTH [None]
  - DYSURIA [None]
